FAERS Safety Report 5876444-8 (Version None)
Quarter: 2008Q3

REPORT INFORMATION
  Report Type: 
  Country: None (occurrence: None)
  Receive Date: 20080910
  Receipt Date: 20080905
  Transmission Date: 20090109
  Serious: Yes (Death)
  Sender: FDA-Public Use
  Company Number: JP-BRISTOL-MYERS SQUIBB COMPANY-14293302

PATIENT
  Age: 56 Year
  Sex: Male
  Weight: 55 kg

DRUGS (11)
  1. SPRYCEL [Suspect]
     Indication: CHRONIC MYELOID LEUKAEMIA
     Dosage: 15DEC06,70MG;REDCED-02FEB07-14JUN08,50MG,INTR 12NOV07,RESTRT 25JAN08,70MG,INTR 04APR08,RESU 22APR08
     Route: 048
     Dates: start: 20070202, end: 20080614
  2. ITRIZOLE [Concomitant]
     Indication: ANTIFUNGAL PROPHYLAXIS
     Dosage: FORMULATION - INJECTION
     Route: 042
     Dates: start: 20080612, end: 20080717
  3. LASIX [Concomitant]
     Indication: PLEURAL EFFUSION
     Dosage: FORMULATION - INJECTION
     Route: 042
     Dates: start: 20080703, end: 20080717
  4. SOLDACTONE [Concomitant]
     Indication: PLEURAL EFFUSION
     Dosage: FORMULATION - INJECTION
     Route: 042
     Dates: start: 20080624, end: 20080627
  5. NEUTROGIN [Concomitant]
     Indication: COLONY STIMULATING FACTOR THERAPY
     Dosage: 100 MICROGRAM 25-MAY08 TO 09-JUL-2008,250MICRGM, 10JUL-17JUL08.
     Route: 058
     Dates: start: 20080525, end: 20080717
  6. CARBENIN [Concomitant]
     Indication: INFECTION
     Route: 042
     Dates: start: 20080701, end: 20080701
  7. PAZUCROSS [Concomitant]
     Indication: INFECTION
     Route: 042
     Dates: start: 20080707, end: 20080711
  8. VANCOMYCIN HYDROCHLORIDE [Concomitant]
     Indication: INFECTION
     Route: 042
     Dates: start: 20080703, end: 20080711
  9. CLINDAMYCIN HCL [Concomitant]
     Indication: INFECTION
     Route: 042
     Dates: start: 20080711, end: 20080716
  10. AZACTAM [Concomitant]
     Indication: INFECTION
     Route: 042
     Dates: start: 20080711, end: 20080716
  11. MEROPEN [Concomitant]
     Indication: INFECTION
     Route: 042
     Dates: start: 20080716, end: 20080717

REACTIONS (2)
  - PNEUMONIA [None]
  - PULMONARY CONGESTION [None]
